FAERS Safety Report 7028994-9 (Version None)
Quarter: 2010Q4

REPORT INFORMATION
  Report Type: 
  Country: None (occurrence: None)
  Receive Date: 20101005
  Receipt Date: 20100929
  Transmission Date: 20110411
  Serious: Yes (Death)
  Sender: FDA-Public Use
  Company Number: A0879910A

PATIENT
  Age: 75 Year
  Sex: Male

DRUGS (1)
  1. PROMACTA [Suspect]
     Indication: IDIOPATHIC THROMBOCYTOPENIC PURPURA
     Dosage: 75MG PER DAY
     Route: 048
     Dates: start: 20100401, end: 20100809

REACTIONS (3)
  - METASTATIC CARCINOID TUMOUR [None]
  - PLATELET COUNT DECREASED [None]
  - SMALL INTESTINAL OBSTRUCTION [None]
